FAERS Safety Report 5054692-7 (Version None)
Quarter: 2006Q2

REPORT INFORMATION
  Report Type: 
  Country: None (occurrence: None)
  Receive Date: 20060614
  Receipt Date: 20060216
  Transmission Date: 20061013
  Serious: No
  Sender: FDA-Public Use
  Company Number: US200602003528

PATIENT
  Age: 68 Year
  Sex: Male

DRUGS (3)
  1. CIALIS [Suspect]
     Dosage: SEE IMAGE
     Dates: start: 20051201
  2. CIALIS [Suspect]
     Dosage: SEE IMAGE
     Dates: start: 20060201
  3. GLUCOSAMINE W/CHONDROITIN (CHONDROITIN SULFATE, GLUCOSAMINE) [Concomitant]

REACTIONS (2)
  - SINUS CONGESTION [None]
  - VERTIGO [None]
